FAERS Safety Report 6930724-3 (Version None)
Quarter: 2010Q3

REPORT INFORMATION
  Report Type: 
  Country: None (occurrence: None)
  Receive Date: 20100818
  Receipt Date: 20100806
  Transmission Date: 20110219
  Serious: Yes (Other)
  Sender: FDA-Public Use
  Company Number: ES-PFIZER INC-2010098816

PATIENT
  Age: 46 Year
  Sex: Female

DRUGS (3)
  1. LYRICA [Suspect]
     Indication: ANXIETY DISORDER
     Dosage: UNK
     Route: 048
     Dates: start: 20090101
  2. ESCITALOPRAM [Concomitant]
     Dosage: UNK
  3. TOPIRAMATE [Concomitant]
     Dosage: UNK

REACTIONS (1)
  - DRUG ABUSE [None]
